FAERS Safety Report 6054192-1 (Version None)
Quarter: 2009Q1

REPORT INFORMATION
  Report Type: 
  Country: None (occurrence: None)
  Receive Date: 20090127
  Receipt Date: 20090120
  Transmission Date: 20090719
  Serious: Yes (Other)
  Sender: FDA-Public Use
  Company Number: US-ELI_LILLY_AND_COMPANY-US200812002369

PATIENT
  Sex: Female
  Weight: 104.31 kg

DRUGS (10)
  1. BYETTA [Suspect]
     Dosage: 5 UG, UNKNOWN
     Route: 065
     Dates: start: 20060105, end: 20060101
  2. BYETTA [Suspect]
     Dosage: 10 UG, 2/D
     Dates: start: 20060101, end: 20080415
  3. ULTRACET [Concomitant]
     Dosage: UNK, UNKNOWN
  4. TARKA [Concomitant]
     Dosage: UNK, UNKNOWN
  5. SERTRALINE [Concomitant]
     Dosage: UNK, UNKNOWN
  6. AMLODIPINE MALEATE/ BENAZEPRIL HYDROCHLORIDE [Concomitant]
     Dosage: UNK, DAILY (1/D)
     Route: 048
  7. BENICAR [Concomitant]
     Dosage: UNK, UNKNOWN
  8. ZYRTEC [Concomitant]
     Dosage: 10 MG, DAILY (1/D)
     Route: 048
  9. ZOCOR [Concomitant]
     Dosage: 40 MG, EACH EVENING
  10. NEXIUM [Concomitant]
     Dosage: 40 MG, AS NEEDED

REACTIONS (3)
  - DIARRHOEA [None]
  - HEPATITIS [None]
  - PANCREATITIS [None]
